FAERS Safety Report 15482021 (Version 1)
Quarter: 2018Q4

REPORT INFORMATION
  Report Type: Spontaneous
  Country: FR (occurrence: FR)
  Receive Date: 20181010
  Receipt Date: 20181010
  Transmission Date: 20190205
  Serious: Yes (Other)
  Sender: FDA-Public Use
  Company Number: FR-GLAXOSMITHKLINE-FR2018180323

PATIENT
  Age: 92 Year
  Sex: Female

DRUGS (1)
  1. LAMICTAL [Suspect]
     Active Substance: LAMOTRIGINE
     Indication: EPILEPSY
     Dosage: 300 MG, QD
     Route: 048
     Dates: start: 20180824, end: 20180830

REACTIONS (3)
  - Disorientation [Unknown]
  - Product prescribing error [Unknown]
  - Confusional state [Unknown]

NARRATIVE: CASE EVENT DATE: 20180824
